FAERS Safety Report 12399519 (Version 1)
Quarter: 2016Q2

REPORT INFORMATION
  Report Type: Spontaneous
  Country: US (occurrence: US)
  Receive Date: 20160524
  Receipt Date: 20160524
  Transmission Date: 20160815
  Serious: No
  Sender: FDA-Public Use
  Company Number: US-PERNIX THERAPEUTICS-2016PT000085

PATIENT

DRUGS (1)
  1. HYDROCODONE [Suspect]
     Active Substance: HYDROCODONE
     Indication: PRODUCT USED FOR UNKNOWN INDICATION

REACTIONS (1)
  - Hypersensitivity [Unknown]
